FAERS Safety Report 4975148-3 (Version None)
Quarter: 2006Q2

REPORT INFORMATION
  Report Type: 
  Country: None (occurrence: None)
  Receive Date: 20060418
  Receipt Date: 20060407
  Transmission Date: 20061013
  Serious: Yes (Death)
  Sender: FDA-Public Use
  Company Number: DK-JNJFOC-20060305671

PATIENT
  Sex: Female

DRUGS (33)
  1. SPORANOX [Suspect]
     Route: 048
     Dates: start: 20060202
  2. ATACAND [Concomitant]
     Dates: start: 20060222, end: 20060228
  3. AMLODIPINE [Concomitant]
     Dates: start: 20060222, end: 20060228
  4. NEXIUM [Concomitant]
     Route: 042
     Dates: start: 20060222, end: 20060224
  5. NEXIUM [Concomitant]
     Route: 042
     Dates: start: 20060222, end: 20060224
  6. UNIKALK [Concomitant]
     Dates: start: 20060222, end: 20060227
  7. UNIKALK [Concomitant]
     Dates: start: 20060222, end: 20060227
  8. UNIKALK [Concomitant]
     Dates: start: 20060222, end: 20060227
  9. AMARYL [Concomitant]
     Dosage: 0.5
     Dates: start: 20060222, end: 20060227
  10. PREDNISOLONE [Concomitant]
     Dates: start: 20060222, end: 20060224
  11. FOSAMAX [Concomitant]
     Dates: start: 20060222, end: 20060227
  12. FURIX [Concomitant]
     Route: 042
  13. FURIX [Concomitant]
     Route: 042
  14. POTASSIUM CHLORIDE [Concomitant]
     Dates: start: 20060222, end: 20060222
  15. TELFAST [Concomitant]
     Dates: start: 20060222
  16. CIPRALEX [Concomitant]
     Dates: start: 20060222, end: 20060227
  17. CODEIN [Concomitant]
     Dates: start: 20060225
  18. PANTOPRAZOLE SODIUM [Concomitant]
     Route: 048
     Dates: start: 20060227, end: 20060227
  19. KLEXANE [Concomitant]
     Dates: start: 20060226, end: 20060226
  20. BETNOVAT [Concomitant]
     Route: 042
     Dates: start: 20060225
  21. NEXIUM [Concomitant]
     Route: 042
     Dates: start: 20060223
  22. IMUREL [Concomitant]
     Dates: start: 20060222
  23. OMNIC [Concomitant]
     Dates: start: 20060222, end: 20060223
  24. ZARATOR [Concomitant]
  25. MAGNYL [Concomitant]
  26. MAGNYL [Concomitant]
  27. HEMOJERN [Concomitant]
     Dates: start: 20060222, end: 20060227
  28. FOLINSYRE [Concomitant]
  29. FOTAMOL [Concomitant]
  30. FOTAMOL [Concomitant]
  31. ZINKLET [Concomitant]
  32. SOLU-MEDROL [Concomitant]
     Route: 042
  33. NIDDAXOL [Concomitant]

REACTIONS (3)
  - ERYTHEMA [None]
  - MULTI-ORGAN FAILURE [None]
  - SKIN OEDEMA [None]
